FAERS Safety Report 16092004 (Version 1)
Quarter: 2019Q1

REPORT INFORMATION
  Report Type: Spontaneous
  Country: NO (occurrence: NO)
  Receive Date: 20190319
  Receipt Date: 20190319
  Transmission Date: 20190418
  Serious: Yes (Hospitalization)
  Sender: FDA-Public Use
  Company Number: NO-PFM-2019-02391

PATIENT

DRUGS (5)
  1. HEMANGIOL [Suspect]
     Active Substance: PROPRANOLOL HYDROCHLORIDE
     Dosage: 2 MG/KG/DAY (6.5 MGX2)
     Route: 048
     Dates: start: 20181227
  2. HEMANGIOL [Suspect]
     Active Substance: PROPRANOLOL HYDROCHLORIDE
     Dosage: 3 MG/KG/DAY (10 MG X 2)
     Route: 048
     Dates: start: 20190103
  3. HEMANGIOL [Suspect]
     Active Substance: PROPRANOLOL HYDROCHLORIDE
     Dosage: 6 MG X 2
     Route: 048
     Dates: start: 20190116
  4. HEMANGIOL [Suspect]
     Active Substance: PROPRANOLOL HYDROCHLORIDE
     Dosage: 3 MG/KG/DAY (11 MG X 2)
     Route: 048
     Dates: start: 20190117
  5. HEMANGIOL [Suspect]
     Active Substance: PROPRANOLOL HYDROCHLORIDE
     Indication: ULCERATED HAEMANGIOMA
     Dosage: 1 MG/KG/DAY (3 MG X 2)
     Route: 048
     Dates: start: 20181220

REACTIONS (2)
  - Hyperglycaemia [Recovered/Resolved]
  - Hyperhidrosis [Recovered/Resolved]
